FAERS Safety Report 8877281 (Version 1)
Quarter: 2012Q4

REPORT INFORMATION
  Report Type: Spontaneous
  Country: DK (occurrence: None)
  Receive Date: 20121025
  Receipt Date: 20121025
  Transmission Date: 20130627
  Serious: Yes (Congenital Anomaly)
  Sender: FDA-Public Use
  Company Number: 2012MA012665

PATIENT

DRUGS (3)
  1. LEVETIRACETAM [Suspect]
     Indication: EPILEPSY
     Dosage: ;TRPL
     Route: 064
  2. TRILEPTAL [Suspect]
     Dosage: 1200 MG;QD;TRPL
     Route: 064
  3. VALPROIC ACID [Concomitant]
     Route: 064

REACTIONS (2)
  - Maternal drugs affecting foetus [None]
  - Polydactyly [None]
